FAERS Safety Report 4653772-5 (Version None)
Quarter: 2005Q2

REPORT INFORMATION
  Report Type: 
  Country: None (occurrence: None)
  Receive Date: 20050504
  Receipt Date: 20050421
  Transmission Date: 20051028
  Serious: Yes (Other)
  Sender: FDA-Public Use
  Company Number: 2005064146

PATIENT
  Sex: Female
  Weight: 80.7403 kg

DRUGS (6)
  1. CELEBREX [Suspect]
     Indication: ILL-DEFINED DISORDER
     Dosage: ORAL
     Route: 048
  2. BEXTRA [Suspect]
     Indication: ARTHRITIS
     Dosage: 60 MG (60 MG, 1 IN 1 D), ORAL
     Route: 048
     Dates: start: 20040101
  3. OXCARBAZEPINE (OXCARBAZEPINE) [Suspect]
     Indication: EPILEPSY
     Dosage: ORAL
     Route: 048
  4. LEVETIRACETAM [Suspect]
     Indication: EPILEPSY
     Dosage: ORAL
     Route: 048
  5. LAMOTRIGINE [Suspect]
     Indication: EPILEPSY
     Dosage: ORAL
     Route: 048
  6. SUMATRIPTAN SUCCINATE (SUMARTRIPTAN SUCCINATE) [Concomitant]

REACTIONS (18)
  - BLOOD GLUCOSE DECREASED [None]
  - BLOOD PRESSURE DECREASED [None]
  - CARDIAC DISORDER [None]
  - CONVULSION [None]
  - DRUG INEFFECTIVE [None]
  - DYSPNOEA [None]
  - EPILEPSY [None]
  - FOOT FRACTURE [None]
  - HEART RATE INCREASED [None]
  - IMPAIRED HEALING [None]
  - IMPLANT SITE REACTION [None]
  - MENTAL DISORDER DUE TO A GENERAL MEDICAL CONDITION [None]
  - PAIN [None]
  - PHARYNGEAL OEDEMA [None]
  - RESPIRATORY ARREST [None]
  - STRESS [None]
  - SWELLING [None]
  - TREMOR [None]
